FAERS Safety Report 9182378 (Version 1)
Quarter: 2012Q4

REPORT INFORMATION
  Report Type: 
  Country: US (occurrence: US)
  Receive Date: 20121030
  Receipt Date: 20121030
  Transmission Date: 20130627
  Serious: Yes (Other)
  Sender: FDA-Public Use
  Company Number: PHEH2012US021088

PATIENT
  Sex: Male
  Weight: 73.47 kg

DRUGS (13)
  1. ZOMETA [Suspect]
  2. ACYCLOVIR [Concomitant]
  3. ASPIRIN [Concomitant]
  4. DEXAMETHASON [Concomitant]
     Dosage: UNK UKN, UNK
  5. FLUCONAZOLE [Concomitant]
     Dosage: UNK UKN, UNK
  6. LORAZEPAM [Concomitant]
     Dosage: UNK UKN, UNK
  7. OMEPRAZOLE [Concomitant]
     Dosage: UNK UKN, UNK
  8. OXYCONTIN [Concomitant]
     Dosage: UNK UKN, UNK
  9. POTASSIUM [Concomitant]
     Dosage: UNK UKN, UNK
  10. PRILOSEC [Concomitant]
     Dosage: UNK UKN, UNK
  11. REVLIMID [Concomitant]
     Dosage: UNK UKN, UNK
  12. TAMIFLU [Concomitant]
     Dosage: UNK UKN, UNK
  13. VELCADE [Concomitant]
     Dosage: UNK UKN, UNK

REACTIONS (3)
  - Pneumonia [Unknown]
  - Bronchitis [Unknown]
  - Nasopharyngitis [Unknown]
